FAERS Safety Report 4400556-9 (Version None)
Quarter: 2004Q3

REPORT INFORMATION
  Report Type: 
  Country: None (occurrence: None)
  Receive Date: 20040716
  Receipt Date: 20040716
  Transmission Date: 20050211
  Serious: Yes (Life-Threatening, Hospitalization)
  Sender: FDA-Public Use
  Company Number: None

PATIENT
  Age: 53 Year
  Sex: Male
  Weight: 74.8435 kg

DRUGS (1)
  1. TRILEPTAL [Suspect]
     Indication: CONVULSION
     Dosage: 1200 MG/DAY ORAL
     Route: 048
     Dates: start: 20040301, end: 20040711

REACTIONS (1)
  - BLOOD SODIUM DECREASED [None]
